FAERS Safety Report 10247404 (Version 3)
Quarter: 2014Q3

REPORT INFORMATION
  Report Type: Report from Study
  Country: US (occurrence: US)
  Receive Date: 20140619
  Receipt Date: 20140701
  Transmission Date: 20150326
  Serious: Yes (Hospitalization)
  Sender: FDA-Public Use
  Company Number: US-ACTELION-A-US2013-92831

PATIENT
  Age: 47 Year
  Sex: Female

DRUGS (4)
  1. XARELTO [Concomitant]
     Active Substance: RIVAROXABAN
  2. VELETRI [Suspect]
     Active Substance: EPOPROSTENOL
     Indication: COR PULMONALE CHRONIC
     Dosage: 11.26 UNK, UNK
     Route: 042
     Dates: start: 20131204
  3. VELETRI [Suspect]
     Active Substance: EPOPROSTENOL
     Dosage: 5.35 NG/KG, PER MIN
     Route: 041
     Dates: start: 20131128
  4. VELETRI [Suspect]
     Active Substance: EPOPROSTENOL
     Dosage: 10.98 NG/KG, PER MIN
     Route: 042
     Dates: start: 20131204

REACTIONS (9)
  - Pulmonary arterial hypertension [Unknown]
  - Oedema [Unknown]
  - Decubitus ulcer [Unknown]
  - Weight decreased [Unknown]
  - Anaemia [Unknown]
  - Abdominal distension [Unknown]
  - Anxiety [Unknown]
  - Dyspnoea [Unknown]
  - Oedema peripheral [Unknown]

NARRATIVE: CASE EVENT DATE: 20140106
